FAERS Safety Report 4456421-4 (Version None)
Quarter: 2004Q3

REPORT INFORMATION
  Report Type: 
  Country: None (occurrence: None)
  Receive Date: 20040830
  Receipt Date: 20040611
  Transmission Date: 20050211
  Serious: No
  Sender: FDA-Public Use
  Company Number: 207162

PATIENT
  Age: 45 Year
  Sex: Female
  Weight: 81.6 kg

DRUGS (11)
  1. XOLAIR [Suspect]
     Indication: ASTHMA
     Dosage: 300 MG, Q4W, INTRAMUSCULAR
     Route: 030
     Dates: start: 20031016, end: 20040501
  2. LEVOXYL [Concomitant]
  3. HYDROCHLOROTHIAZIDE [Concomitant]
  4. TOPROL-XL [Concomitant]
  5. FORADIL [Concomitant]
  6. FLOVENT [Concomitant]
  7. SINGULAIR [Concomitant]
  8. PREVACID [Concomitant]
  9. FERROUS SULFATE TAB [Concomitant]
  10. ANTIDEPRESSANT NOS (ANTIDEPRESSANT NOS) [Concomitant]
  11. SSKI (POTASSIUM IODIDE) [Concomitant]

REACTIONS (1)
  - ARTHRITIS [None]
